FAERS Safety Report 10950879 (Version 1)
Quarter: 2015Q1

REPORT INFORMATION
  Report Type: Spontaneous
  Country: US (occurrence: None)
  Receive Date: 20150226
  Receipt Date: 20150226
  Transmission Date: 20150721
  Serious: Yes (Other)
  Sender: FDA-Public Use
  Company Number: TPA2011A00792

PATIENT
  Age: 71 Year
  Sex: Male

DRUGS (2)
  1. PREVACID 24 HR [Suspect]
     Active Substance: LANSOPRAZOLE
     Dates: start: 2010
  2. PREVACID [Suspect]
     Active Substance: LANSOPRAZOLE
     Dates: start: 2010

REACTIONS (3)
  - Hip fracture [None]
  - Glaucoma [None]
  - Osteoporosis [None]
